FAERS Safety Report 8108794-9 (Version None)
Quarter: 2012Q1

REPORT INFORMATION
  Report Type: 
  Country: None (occurrence: None)
  Receive Date: 20120202
  Receipt Date: 20120110
  Transmission Date: 20120608
  Serious: No
  Sender: FDA-Public Use
  Company Number: US-AMGEN-USASP2011034607

PATIENT
  Age: 67 Year
  Sex: Female
  Weight: 70.748 kg

DRUGS (1)
  1. ENBREL [Suspect]
     Indication: ANKYLOSING SPONDYLITIS
     Dosage: 50 MG, QWK
     Dates: start: 20110621

REACTIONS (2)
  - CONTUSION [None]
  - PAIN IN EXTREMITY [None]
